FAERS Safety Report 20921859 (Version 1)
Quarter: 2022Q2

REPORT INFORMATION
  Report Type: Report from Study
  Country: CO (occurrence: CO)
  Receive Date: 20220607
  Receipt Date: 20220607
  Transmission Date: 20220721
  Serious: Yes (Other)
  Sender: FDA-Public Use
  Company Number: CO-ABBVIE-22K-036-4422121-00

PATIENT
  Sex: Female
  Weight: 71 kg

DRUGS (10)
  1. HUMIRA [Suspect]
     Active Substance: ADALIMUMAB
     Indication: Psoriasis
     Route: 058
  2. HUMIRA [Suspect]
     Active Substance: ADALIMUMAB
     Indication: Psoriasis
     Route: 058
     Dates: start: 20130306
  3. METHOTREXATE [Concomitant]
     Active Substance: METHOTREXATE
     Indication: Psoriasis
     Dosage: EVERY WEEKEND
     Route: 048
     Dates: start: 2017
  4. METHOTREXATE [Concomitant]
     Active Substance: METHOTREXATE
     Indication: Psoriatic arthropathy
  5. METHOTREXATE [Concomitant]
     Active Substance: METHOTREXATE
     Indication: Psoriasis
     Route: 058
     Dates: start: 2017
  6. METHOTREXATE [Concomitant]
     Active Substance: METHOTREXATE
     Indication: Psoriatic arthropathy
  7. VALSARTAN [Concomitant]
     Active Substance: VALSARTAN
     Indication: Hypertension
     Route: 048
     Dates: start: 2021
  8. LOSARTAN [Concomitant]
     Active Substance: LOSARTAN
     Indication: Hypertension
     Route: 048
     Dates: start: 2019, end: 2021
  9. CARVEDILOL [Concomitant]
     Active Substance: CARVEDILOL
     Indication: Hypertension
     Route: 048
     Dates: start: 2021
  10. METOPROLOL [Concomitant]
     Active Substance: METOPROLOL
     Indication: Hypertension
     Route: 048

REACTIONS (7)
  - Scoliosis [Recovered/Resolved]
  - Spinal fracture [Recovered/Resolved]
  - Gait disturbance [Recovered/Resolved]
  - Finger deformity [Recovered/Resolved]
  - Psoriatic arthropathy [Recovered/Resolved]
  - Arthritis [Recovered/Resolved]
  - Arthralgia [Recovered/Resolved]

NARRATIVE: CASE EVENT DATE: 20200101
